FAERS Safety Report 14539484 (Version 3)
Quarter: 2018Q2

REPORT INFORMATION
  Report Type: Report from Study
  Country: CA (occurrence: CA)
  Receive Date: 20180216
  Receipt Date: 20180613
  Transmission Date: 20180711
  Serious: Yes (Hospitalization, Other)
  Sender: FDA-Public Use
  Company Number: PHHY2013CA144700

PATIENT
  Sex: Female

DRUGS (2)
  1. GILENYA [Suspect]
     Active Substance: FINGOLIMOD HYDROCHLORIDE
     Dosage: UNK
     Route: 048
     Dates: start: 20171109
  2. GILENYA [Suspect]
     Active Substance: FINGOLIMOD HYDROCHLORIDE
     Indication: RELAPSING-REMITTING MULTIPLE SCLEROSIS
     Dosage: 0.5 MG, QD
     Route: 048
     Dates: start: 20130115, end: 20170228

REACTIONS (8)
  - Haematuria [Unknown]
  - Pelvic pain [Unknown]
  - Endometrial hyperplasia [Unknown]
  - Deafness [Unknown]
  - Ovarian mass [Unknown]
  - Infection [Unknown]
  - Malaise [Unknown]
  - Intestinal cyst [Unknown]
